FAERS Safety Report 5848452-4 (Version None)
Quarter: 2008Q3

REPORT INFORMATION
  Report Type: 
  Country: None (occurrence: None)
  Receive Date: 20080818
  Receipt Date: 20080808
  Transmission Date: 20090109
  Serious: Yes (Hospitalization, Disabling, Other)
  Sender: FDA-Public Use
  Company Number: JP-ASTRAZENECA-2008AP06032

PATIENT
  Age: 28836 Day
  Sex: Male

DRUGS (19)
  1. SEROQUEL [Suspect]
     Indication: DELUSION
     Route: 048
     Dates: start: 20050110, end: 20050324
  2. SEROQUEL [Suspect]
     Route: 048
     Dates: start: 20050325, end: 20060312
  3. SEROQUEL [Suspect]
     Route: 048
     Dates: start: 20060313
  4. SEROQUEL [Suspect]
     Route: 048
  5. LUVOX [Suspect]
     Indication: DEPRESSION
     Route: 048
     Dates: start: 20051207, end: 20060103
  6. LUVOX [Suspect]
     Route: 048
     Dates: start: 20060104, end: 20060117
  7. LUVOX [Suspect]
     Route: 048
     Dates: start: 20060118, end: 20060207
  8. LUVOX [Suspect]
     Route: 048
     Dates: start: 20060208, end: 20060301
  9. ZYPREXA [Suspect]
     Indication: PSYCHOTIC DISORDER
     Route: 048
     Dates: start: 20050130, end: 20050324
  10. ARICEPT [Suspect]
     Indication: COGNITIVE DISORDER
     Route: 048
     Dates: start: 20050318
  11. ARICEPT [Suspect]
     Route: 048
     Dates: end: 20050324
  12. LUDIOMIL [Suspect]
     Indication: DEPRESSION
     Route: 048
     Dates: start: 20041214
  13. LUDIOMIL [Suspect]
     Route: 048
     Dates: end: 20050215
  14. NORTRIPTYLINE HCL [Concomitant]
     Indication: LISTLESS
     Route: 048
     Dates: start: 20050209, end: 20050317
  15. RESPERIDONE [Concomitant]
     Indication: PSYCHOTIC DISORDER
     Route: 048
     Dates: start: 20050124, end: 20050129
  16. SULPIRIDE [Concomitant]
     Indication: DEPRESSION
     Route: 048
     Dates: start: 20050518
  17. SULPIRIDE [Concomitant]
     Route: 048
     Dates: end: 20050624
  18. SULPIRIDE [Concomitant]
     Route: 048
     Dates: start: 20051018
  19. SULPIRIDE [Concomitant]
     Route: 048
     Dates: end: 20051208

REACTIONS (5)
  - DRUG INTERACTION [None]
  - EXTRAPYRAMIDAL DISORDER [None]
  - LIBIDO INCREASED [None]
  - URINARY RETENTION [None]
  - VASCULAR DEMENTIA [None]
